FAERS Safety Report 18882474 (Version 1)
Quarter: 2021Q1

REPORT INFORMATION
  Report Type: Report from Study
  Country: None (occurrence: ZA)
  Receive Date: 20210212
  Receipt Date: 20210212
  Transmission Date: 20210420
  Serious: Yes (Death, Hospitalization)
  Sender: FDA-Public Use
  Company Number: ZA-ABBVIE-21K-143-3771909-00

PATIENT
  Age: 58 Year
  Sex: Male

DRUGS (1)
  1. HUMIRA [Suspect]
     Active Substance: ADALIMUMAB
     Indication: RHEUMATOID ARTHRITIS
     Route: 058
     Dates: start: 20200221

REACTIONS (4)
  - Illness [Not Recovered/Not Resolved]
  - Bacterial infection [Not Recovered/Not Resolved]
  - Immunodeficiency [Fatal]
  - Arthritis [Unknown]

NARRATIVE: CASE EVENT DATE: 202011
